FAERS Safety Report 9019469 (Version 1)
Quarter: 2013Q1

REPORT INFORMATION
  Report Type: Spontaneous
  Country: DK (occurrence: NO)
  Receive Date: 20130118
  Receipt Date: 20130118
  Transmission Date: 20140127
  Serious: Yes (Disabling, Other)
  Sender: FDA-Public Use
  Company Number: NO-FRI-1000041770

PATIENT
  Age: 23 None
  Sex: Male
  Weight: 100 kg

DRUGS (1)
  1. CITALOPRAM [Suspect]
     Dosage: INCREASE AS NECCASSARY. GET IMMUNE, BETTER TO SKIP ONE DAY THAN INCREASE, GIVES SAME EFFECT

REACTIONS (3)
  - Inflammation [Not Recovered/Not Resolved]
  - Iritis [Not Recovered/Not Resolved]
  - Autoimmune disorder [Not Recovered/Not Resolved]
